FAERS Safety Report 18560317 (Version 1)
Quarter: 2020Q4

REPORT INFORMATION
  Report Type: Spontaneous
  Country: US (occurrence: US)
  Receive Date: 20201130
  Receipt Date: 20201130
  Transmission Date: 20210114
  Serious: Yes (Other)
  Sender: FDA-Public Use
  Company Number: US-COOPERSURGICAL, INC.-US-2020CPS002951

PATIENT
  Age: 37 Year
  Sex: Female
  Weight: 64.4 kg

DRUGS (2)
  1. VITAMIN D                          /00107901/ [Concomitant]
     Active Substance: ERGOCALCIFEROL
     Indication: VITAMIN D DEFICIENCY
     Dosage: 50000 IU
     Route: 065
  2. PARAGARD T 380A [Suspect]
     Active Substance: COPPER
     Indication: CONTRACEPTION
     Dosage: UNK
     Route: 015
     Dates: start: 20181019

REACTIONS (4)
  - Pelvic pain [Unknown]
  - Device dislocation [Not Recovered/Not Resolved]
  - Ovarian cyst [Unknown]
  - Flank pain [Unknown]

NARRATIVE: CASE EVENT DATE: 20201031
